FAERS Safety Report 25490382 (Version 1)
Quarter: 2025Q2

REPORT INFORMATION
  Report Type: Spontaneous
  Country: JP (occurrence: JP)
  Receive Date: 20250628
  Receipt Date: 20250628
  Transmission Date: 20250716
  Serious: Yes (Other)
  Sender: AMGEN
  Company Number: JP-AMGEN-JPNSP2025123162

PATIENT
  Age: 64 Year

DRUGS (1)
  1. REPATHA [Suspect]
     Active Substance: EVOLOCUMAB
     Indication: Product used for unknown indication
     Route: 058

REACTIONS (8)
  - Paralysis [Unknown]
  - Injection site pain [Unknown]
  - Injection site haemorrhage [Unknown]
  - Contusion [Unknown]
  - Memory impairment [Unknown]
  - Device difficult to use [Unknown]
  - Orthobiologic treatment [Unknown]
  - Laboratory test [Unknown]
